FAERS Safety Report 9064137 (Version 1)
Quarter: 2013Q1

REPORT INFORMATION
  Report Type: Spontaneous
  Country: US (occurrence: US)
  Receive Date: 20130128
  Receipt Date: 20130128
  Transmission Date: 20140127
  Serious: No
  Sender: FDA-Public Use
  Company Number: US-MYLANLABS-2012S1021128

PATIENT
  Sex: Female

DRUGS (1)
  1. CLONIDINE TRANSDERMAL SYSTEM [Suspect]
     Indication: BLOOD PRESSURE
     Dosage: CHANGED QW
     Route: 062
     Dates: start: 201205

REACTIONS (6)
  - Drug effect decreased [Not Recovered/Not Resolved]
  - Blood pressure increased [Not Recovered/Not Resolved]
  - Application site pain [Not Recovered/Not Resolved]
  - Application site swelling [Not Recovered/Not Resolved]
  - Application site pruritus [Not Recovered/Not Resolved]
  - Application site erythema [Not Recovered/Not Resolved]
